FAERS Safety Report 9932529 (Version 2)
Quarter: 2014Q1

REPORT INFORMATION
  Report Type: Report from Study
  Country: PR (occurrence: PR)
  Receive Date: 20140228
  Receipt Date: 20140228
  Transmission Date: 20141002
  Serious: No
  Sender: FDA-Public Use
  Company Number: PR-ABBVIE-13X-131-1134251-00

PATIENT
  Sex: Male
  Weight: 83.08 kg

DRUGS (7)
  1. ANDROGEL [Suspect]
     Indication: BLOOD TESTOSTERONE ABNORMAL
     Route: 051
     Dates: start: 201212
  2. BYDUREON [Concomitant]
     Indication: DIABETES MELLITUS
     Route: 058
  3. METFORMIN [Concomitant]
     Indication: DIABETES MELLITUS
     Route: 048
  4. ZOLOFT [Concomitant]
     Indication: DEPRESSION
     Route: 048
  5. CRESTOR [Concomitant]
     Indication: HYPERCHOLESTEROLAEMIA
     Route: 048
  6. CARDIOBEE [Concomitant]
     Indication: VITAMIN SUPPLEMENTATION
     Route: 048
  7. LOSARTAN [Concomitant]
     Indication: HYPERTENSION
     Route: 048

REACTIONS (2)
  - Azoospermia [Not Recovered/Not Resolved]
  - Drug ineffective [Not Recovered/Not Resolved]
